FAERS Safety Report 5196461-3 (Version None)
Quarter: 2006Q4

REPORT INFORMATION
  Report Type: 
  Country: None (occurrence: None)
  Receive Date: 20061227
  Receipt Date: 20061212
  Transmission Date: 20070319
  Serious: Yes (Hospitalization)
  Sender: FDA-Public Use
  Company Number: 150936ISR

PATIENT
  Age: 26 Year
  Sex: Male

DRUGS (3)
  1. NAPROXEN [Suspect]
     Indication: TONSILLITIS
     Dosage: 1000 MG (500 MG,2 IN 1 D)
     Route: 048
     Dates: start: 20060609, end: 20060609
  2. PHENETHICILLIN POTASSIUM [Suspect]
     Indication: TONSILLITIS
     Dosage: 1500 MG (500 MG, 3 IN 1 D)
     Dates: start: 20060530, end: 20060602
  3. AUGMENTIN '125' [Suspect]
     Indication: TONSILLITIS
     Dosage: 500/125 MG
     Dates: start: 20060602, end: 20060609

REACTIONS (1)
  - RHABDOMYOLYSIS [None]
